FAERS Safety Report 18650265 (Version 3)
Quarter: 2021Q1

REPORT INFORMATION
  Report Type: Spontaneous
  Country: US (occurrence: US)
  Receive Date: 20201222
  Receipt Date: 20210225
  Transmission Date: 20210419
  Serious: Yes (Death, Hospitalization)
  Sender: FDA-Public Use
  Company Number: US-ELI_LILLY_AND_COMPANY-US202012010314

PATIENT
  Age: 65 Year
  Sex: Female

DRUGS (4)
  1. OXYGEN. [Concomitant]
     Active Substance: OXYGEN
  2. CONVALESCENT PLASMA COVID?19 [Concomitant]
  3. BARICITINIB. [Suspect]
     Active Substance: BARICITINIB
     Indication: COVID-19
     Dosage: 4 MG, DAILY
     Route: 048
     Dates: start: 20201204, end: 20201213
  4. REMDESIVIR. [Concomitant]
     Active Substance: REMDESIVIR
     Dosage: UNK UNK, UNKNOWN
     Route: 065
     Dates: start: 20201201, end: 20201205

REACTIONS (2)
  - Acute respiratory distress syndrome [Fatal]
  - COVID-19 pneumonia [Unknown]

NARRATIVE: CASE EVENT DATE: 20201212
